FAERS Safety Report 16314731 (Version 1)
Quarter: 2019Q2

REPORT INFORMATION
  Report Type: Spontaneous
  Country: US (occurrence: US)
  Receive Date: 20190409
  Receipt Date: 20190409
  Transmission Date: 20190711
  Serious: Yes (Life-Threatening, Other)
  Sender: FDA-Public Use
  Company Number: None

PATIENT
  Age: 65 Year
  Sex: Male

DRUGS (1)
  1. LOSARTAN POTASSIUM. [Suspect]
     Active Substance: LOSARTAN POTASSIUM
     Indication: BLOOD PRESSURE MEASUREMENT
     Dosage: ?          QUANTITY:1 PILL DAILY;?
     Route: 048
     Dates: start: 201710, end: 201810

REACTIONS (4)
  - Muscle atrophy [None]
  - Weight decreased [None]
  - Decreased appetite [None]
  - Product complaint [None]

NARRATIVE: CASE EVENT DATE: 20171001
